FAERS Safety Report 6433307-7 (Version None)
Quarter: 2009Q4

REPORT INFORMATION
  Report Type: 
  Country: None (occurrence: None)
  Receive Date: 20091109
  Receipt Date: 20091104
  Transmission Date: 20100525
  Serious: Yes (Other)
  Sender: FDA-Public Use
  Company Number: TW-ABBOTT-08P-153-0453368-00

PATIENT
  Age: 42 Year
  Sex: Female
  Weight: 62.9 kg

DRUGS (2)
  1. REDUCTIL [Suspect]
     Indication: OVERWEIGHT
     Route: 048
     Dates: start: 20080410
  2. REDUCTIL [Suspect]
     Route: 048

REACTIONS (1)
  - ABORTION INDUCED [None]
